FAERS Safety Report 7041628-2 (Version None)
Quarter: 2010Q4

REPORT INFORMATION
  Report Type: 
  Country: None (occurrence: None)
  Receive Date: 20101013
  Receipt Date: 20090918
  Transmission Date: 20110411
  Serious: No
  Sender: FDA-Public Use
  Company Number: US-ASTRAZENECA-2009SE13575

PATIENT
  Sex: Female

DRUGS (19)
  1. SYMBICORT [Suspect]
     Indication: DYSPNOEA
     Dosage: 4 PUFFS
     Route: 055
  2. SYMBICORT [Suspect]
     Dosage: 2 PUFFS
     Route: 055
  3. ATENOLOL [Concomitant]
  4. ISOSORBIDE MONONITRATE [Concomitant]
  5. INSULIN [Concomitant]
  6. FUROSEMIDE [Concomitant]
  7. LISINOPRIL [Concomitant]
  8. PLAVIX [Concomitant]
  9. LIPITOR [Concomitant]
  10. NOVOLOG [Concomitant]
  11. LANTUS [Concomitant]
  12. NITROGLYCERIN [Concomitant]
  13. ALPRAZOLAM [Concomitant]
  14. AMBIEN [Concomitant]
  15. LYRICA [Concomitant]
  16. OMEPRAZOLE [Concomitant]
  17. ESTRADIOL [Concomitant]
  18. FEXOFENADINE HCL [Concomitant]
  19. WELLBUTRIN [Concomitant]

REACTIONS (2)
  - PRODUCT TASTE ABNORMAL [None]
  - UPPER-AIRWAY COUGH SYNDROME [None]
